FAERS Safety Report 22043418 (Version 1)
Quarter: 2023Q1

REPORT INFORMATION
  Report Type: Report from Study
  Country: CA (occurrence: CA)
  Receive Date: 20230228
  Receipt Date: 20230228
  Transmission Date: 20230417
  Serious: Yes (Other)
  Sender: FDA-Public Use
  Company Number: CA-002147023-NVSC2021CA290835

PATIENT
  Age: 26 Year
  Sex: Male

DRUGS (5)
  1. LEFLUNOMIDE [Suspect]
     Active Substance: LEFLUNOMIDE
     Indication: Psoriatic arthropathy
     Dosage: UNK
     Route: 048
     Dates: start: 2017, end: 2017
  2. LEFLUNOMIDE [Suspect]
     Active Substance: LEFLUNOMIDE
     Dosage: UNK (SINCE IN DEC UNSPECIFIED YEAR )
     Route: 065
  3. METHOTREXATE [Suspect]
     Active Substance: METHOTREXATE
     Indication: Psoriatic arthropathy
     Dosage: UNK
     Route: 065
  4. REMICADE [Concomitant]
     Active Substance: INFLIXIMAB
     Indication: Product used for unknown indication
     Dosage: UNK (FORMULATION: POWDER FOR SOLUTION)
     Route: 042
  5. SULFASALAZINE [Concomitant]
     Active Substance: SULFASALAZINE
     Indication: Product used for unknown indication
     Dosage: UNK
     Route: 048
     Dates: start: 2019, end: 2019

REACTIONS (11)
  - Abdominal discomfort [Unknown]
  - Pain [Unknown]
  - Psoriatic arthropathy [Unknown]
  - Synovitis [Unknown]
  - Dactylitis [Unknown]
  - Bone pain [Unknown]
  - Ankle deformity [Unknown]
  - Tenderness [Unknown]
  - Bone swelling [Unknown]
  - Psoriasis [Unknown]
  - Drug ineffective [Unknown]
